FAERS Safety Report 12734686 (Version 1)
Quarter: 2016Q3

REPORT INFORMATION
  Report Type: Spontaneous
  Country: US (occurrence: US)
  Receive Date: 20160913
  Receipt Date: 20160913
  Transmission Date: 20161109
  Serious: No
  Sender: FDA-Public Use
  Company Number: US-ASTRAZENECA-2016SE84871

PATIENT
  Age: 59 Year
  Sex: Female
  Weight: 117.5 kg

DRUGS (8)
  1. TOPROL XL [Suspect]
     Active Substance: METOPROLOL SUCCINATE
     Indication: CARDIAC DISORDER
     Dosage: DAILY
     Route: 048
     Dates: start: 2016
  2. OMEPRAZOLE. [Suspect]
     Active Substance: OMEPRAZOLE
     Indication: DYSPEPSIA
     Route: 048
  3. TOPROL XL [Suspect]
     Active Substance: METOPROLOL SUCCINATE
     Indication: BLOOD PRESSURE ABNORMAL
     Dosage: DAILY
     Route: 048
     Dates: start: 2016
  4. LOSARTAN AND HYDROCHLOROTHIAZIDE [Concomitant]
     Active Substance: HYDROCHLOROTHIAZIDE\LOSARTAN POTASSIUM
  5. BRILINTA [Suspect]
     Active Substance: TICAGRELOR
     Indication: STENT PLACEMENT
     Route: 048
     Dates: start: 20160405
  6. ASPIRIN. [Concomitant]
     Active Substance: ASPIRIN
     Indication: ADJUVANT THERAPY
     Dates: start: 201604
  7. METFORMIN [Concomitant]
     Active Substance: METFORMIN HYDROCHLORIDE
     Dosage: 1000.0MG UNKNOWN
  8. INSULIN [Concomitant]
     Active Substance: INSULIN NOS

REACTIONS (11)
  - Oropharyngeal pain [Unknown]
  - Headache [Unknown]
  - Hypersensitivity [Unknown]
  - Haemoptysis [Unknown]
  - Pharyngeal oedema [Unknown]
  - Asthma [Unknown]
  - Productive cough [Unknown]
  - Cough [Unknown]
  - Upper-airway cough syndrome [Unknown]
  - Dyspnoea [Recovering/Resolving]
  - Intentional product misuse [Unknown]

NARRATIVE: CASE EVENT DATE: 2016
